FAERS Safety Report 8796286 (Version 2)
Quarter: 2012Q4

REPORT INFORMATION
  Report Type: 
  Country: DE (occurrence: GB)
  Receive Date: 20120919
  Receipt Date: 20121002
  Transmission Date: 20130627
  Serious: Yes (Other)
  Sender: FDA-Public Use
  Company Number: GB-BRISTOL-MYERS SQUIBB COMPANY-16955874

PATIENT
  Age: 49 Year
  Sex: Female

DRUGS (2)
  1. METFORMIN HCL TABS [Suspect]
     Indication: TYPE 2 DIABETES MELLITUS
     Dosage: Aurobindo brand
     Route: 048
  2. LISINOPRIL [Concomitant]
     Indication: HYPERTENSION
     Route: 048
     Dates: start: 2002

REACTIONS (7)
  - Rash [Recovering/Resolving]
  - Urticaria [Recovering/Resolving]
  - Blister [Recovering/Resolving]
  - Skin reaction [Recovering/Resolving]
  - Pruritus genital [Recovering/Resolving]
  - Pruritus [Recovering/Resolving]
  - Product substitution issue [Unknown]
